FAERS Safety Report 6574970-X (Version None)
Quarter: 2010Q1

REPORT INFORMATION
  Report Type: 
  Country: None (occurrence: None)
  Receive Date: 20100209
  Receipt Date: 20100129
  Transmission Date: 20100710
  Serious: Yes (Hospitalization, Other)
  Sender: FDA-Public Use
  Company Number: JP-NOVOPROD-302819

PATIENT
  Age: 51 Year
  Sex: Female
  Weight: 45 kg

DRUGS (5)
  1. LEVEMIR CHU PENFILL [Suspect]
     Indication: TYPE 1 DIABETES MELLITUS
     Dosage: 3 U, QD
     Route: 058
     Dates: start: 20090703, end: 20091214
  2. NOVORAPID CHU PENFILL [Suspect]
     Indication: TYPE 1 DIABETES MELLITUS
     Dosage: 12 U, QD
     Route: 058
     Dates: start: 20090610, end: 20091215
  3. NOVOLIN R [Suspect]
     Indication: TYPE 1 DIABETES MELLITUS
     Dosage: 12 U, QD
     Route: 058
     Dates: start: 20091215
  4. NOVOLIN N [Suspect]
     Indication: TYPE 1 DIABETES MELLITUS
     Dosage: 4 U, QD
     Route: 058
     Dates: start: 20091215, end: 20091216
  5. LANTUS [Concomitant]
     Indication: TYPE 1 DIABETES MELLITUS
     Dosage: 4 U, QD
     Route: 058
     Dates: start: 20091217

REACTIONS (1)
  - EOSINOPHILIC PNEUMONIA [None]
